FAERS Safety Report 18199509 (Version 1)
Quarter: 2020Q3

REPORT INFORMATION
  Report Type: Spontaneous
  Country: US (occurrence: US)
  Receive Date: 20200826
  Receipt Date: 20200826
  Transmission Date: 20201103
  Serious: No
  Sender: FDA-Public Use
  Company Number: US-ASTRAZENECA-2020SE99828

PATIENT
  Sex: Male

DRUGS (1)
  1. BYDUREON BCISE [Suspect]
     Active Substance: EXENATIDE
     Route: 065

REACTIONS (10)
  - Nausea [Unknown]
  - Dyspepsia [Unknown]
  - Intentional device misuse [Unknown]
  - Insomnia [Unknown]
  - Vomiting [Unknown]
  - Injection site nodule [Unknown]
  - Diarrhoea [Unknown]
  - Constipation [Unknown]
  - Injection site pruritus [Unknown]
  - Headache [Unknown]
